FAERS Safety Report 14226330 (Version 4)
Quarter: 2018Q1

REPORT INFORMATION
  Report Type: Report from Study
  Country: CA (occurrence: CA)
  Receive Date: 20171127
  Receipt Date: 20180102
  Transmission Date: 20180508
  Serious: Yes (Hospitalization, Other)
  Sender: FDA-Public Use
  Company Number: CA-BAYER-2017-190432

PATIENT
  Age: 64 Year
  Sex: Female

DRUGS (3)
  1. SPIRONOLACTONE. [Concomitant]
     Active Substance: SPIRONOLACTONE
     Indication: OEDEMA
     Dosage: UNK
  2. ADEMPAS [Suspect]
     Active Substance: RIOCIGUAT
     Indication: PULMONARY ARTERIAL HYPERTENSION
     Dosage: 1.0MG IN AM AND AFTERNOON, 1.5MG QHS
     Dates: start: 20170227, end: 20171204
  3. LASIX [Concomitant]
     Active Substance: FUROSEMIDE
     Indication: OEDEMA
     Dosage: UNK

REACTIONS (23)
  - Blood pressure decreased [None]
  - Dizziness [Recovering/Resolving]
  - Peripheral swelling [Recovered/Resolved]
  - Hypotension [Recovering/Resolving]
  - Nasal obstruction [Not Recovered/Not Resolved]
  - Blood pressure diastolic decreased [None]
  - Haemorrhage [Unknown]
  - Hypotension [Recovered/Resolved]
  - Off label use [None]
  - Dizziness [Recovered/Resolved]
  - Blood pressure systolic decreased [Unknown]
  - Transfusion [Recovered/Resolved]
  - Blood pressure decreased [Recovered/Resolved]
  - Blood pressure decreased [Not Recovered/Not Resolved]
  - Therapy cessation [Unknown]
  - Blood pressure decreased [None]
  - Hypotension [Recovered/Resolved]
  - Fatigue [Recovering/Resolving]
  - Pyrexia [Unknown]
  - Hospitalisation [Not Recovered/Not Resolved]
  - Nasal dryness [Not Recovered/Not Resolved]
  - Peripheral swelling [Not Recovered/Not Resolved]
  - Dizziness [Recovering/Resolving]

NARRATIVE: CASE EVENT DATE: 2017
